FAERS Safety Report 17044016 (Version 1)
Quarter: 2019Q4

REPORT INFORMATION
  Report Type: Spontaneous
  Country: US (occurrence: US)
  Receive Date: 20191118
  Receipt Date: 20191118
  Transmission Date: 20200122
  Serious: Yes (Other)
  Sender: FDA-Public Use
  Company Number: US-MYLANLABS-2019M1109063

PATIENT
  Sex: Female
  Weight: 104 kg

DRUGS (1)
  1. DENAVIR [Suspect]
     Active Substance: PENCICLOVIR
     Indication: ORAL HERPES
     Dosage: UNK UNK, PRN

REACTIONS (8)
  - Sepsis [Recovered/Resolved]
  - Renal cell carcinoma [Not Recovered/Not Resolved]
  - Body height decreased [Not Recovered/Not Resolved]
  - Staphylococcal infection [Unknown]
  - Osteomyelitis [Recovered/Resolved]
  - Vertebral osteophyte [Not Recovered/Not Resolved]
  - Drug ineffective [Not Recovered/Not Resolved]
  - Product quality issue [Unknown]
